FAERS Safety Report 8233790-0 (Version None)
Quarter: 2012Q1

REPORT INFORMATION
  Report Type: 
  Country: None (occurrence: None)
  Receive Date: 20120326
  Receipt Date: 20120315
  Transmission Date: 20120608
  Serious: Yes (Other)
  Sender: FDA-Public Use
  Company Number: JP-JNJFOC-20120112948

PATIENT
  Sex: Female
  Weight: 82 kg

DRUGS (11)
  1. AMLODIPINE [Concomitant]
     Indication: HYPERTENSION
     Route: 048
     Dates: start: 20110901
  2. ALPRAZOLAM [Concomitant]
     Route: 048
     Dates: start: 20110615
  3. PITAVASTATIN CALCIUM [Concomitant]
     Indication: HYPERCHOLESTEROLAEMIA
     Route: 048
     Dates: start: 20111005, end: 20120125
  4. MERISLON [Concomitant]
     Indication: DIZZINESS
     Route: 048
     Dates: start: 20110615
  5. SIMPONI [Suspect]
     Route: 058
     Dates: start: 20111124
  6. WARFARIN SODIUM [Concomitant]
     Indication: THROMBOPHLEBITIS
     Route: 048
     Dates: start: 20100421
  7. SELBEX [Concomitant]
     Indication: GASTRITIS
     Route: 048
     Dates: start: 20100127
  8. SIMPONI [Suspect]
     Indication: RHEUMATOID ARTHRITIS
     Route: 058
     Dates: start: 20111221
  9. ADENOSINE [Concomitant]
     Indication: DIZZINESS
     Route: 048
     Dates: start: 20100521
  10. MAGNESIUM SULFATE [Concomitant]
     Indication: CONSTIPATION
     Route: 048
     Dates: start: 20110427
  11. LOXONIN [Concomitant]
     Indication: PAIN
     Route: 048
     Dates: start: 20100127

REACTIONS (7)
  - RHABDOMYOLYSIS [None]
  - C-REACTIVE PROTEIN INCREASED [None]
  - THYROID MASS [None]
  - MALAISE [None]
  - PARAESTHESIA [None]
  - PAIN IN EXTREMITY [None]
  - WHITE BLOOD CELL COUNT INCREASED [None]
